FAERS Safety Report 13276499 (Version 1)
Quarter: 2017Q1

REPORT INFORMATION
  Report Type: Spontaneous
  Country: GB (occurrence: GB)
  Receive Date: 20170228
  Receipt Date: 20170228
  Transmission Date: 20170428
  Serious: Yes (Other)
  Sender: FDA-Public Use
  Company Number: GB-AUROBINDO-AUR-APL-2016-16033

PATIENT
  Age: 77 Year
  Sex: Female

DRUGS (1)
  1. PARACETAMOL SOLUABLE TABLET [Suspect]
     Active Substance: ACETAMINOPHEN
     Indication: PRODUCT USED FOR UNKNOWN INDICATION
     Dosage: 1 G, FOUR TIMES/DAY
     Route: 065

REACTIONS (2)
  - Agitation [Unknown]
  - Aggression [Unknown]

NARRATIVE: CASE EVENT DATE: 20160921
